FAERS Safety Report 7289067-3 (Version None)
Quarter: 2011Q1

REPORT INFORMATION
  Report Type: 
  Country: None (occurrence: None)
  Receive Date: 20110211
  Receipt Date: 20110207
  Transmission Date: 20110831
  Serious: Yes (Death)
  Sender: FDA-Public Use
  Company Number: ZA-PFIZER INC-2011026817

PATIENT
  Age: 71 Year
  Sex: Male

DRUGS (4)
  1. ZYVOX [Suspect]
  2. MERONEM [Concomitant]
  3. METRONIDAZOLE [Concomitant]
  4. INVANZ [Concomitant]

REACTIONS (1)
  - DEATH [None]
